FAERS Safety Report 16915843 (Version 1)
Quarter: 2019Q4

REPORT INFORMATION
  Report Type: Spontaneous
  Country: FR (occurrence: FR)
  Receive Date: 20191014
  Receipt Date: 20191014
  Transmission Date: 20200122
  Serious: Yes (Hospitalization, Other)
  Sender: FDA-Public Use
  Company Number: FR-SA-2019SA277317

PATIENT
  Age: 21 Year
  Sex: Female

DRUGS (2)
  1. OVITRELLE [Suspect]
     Active Substance: CHORIOGONADOTROPIN ALFA
     Indication: OVULATION INDUCTION
     Dosage: 1 DF
     Route: 058
     Dates: start: 20190427, end: 20190427
  2. CLOMID [Suspect]
     Active Substance: CLOMIPHENE CITRATE
     Indication: CONTROLLED OVARIAN STIMULATION
     Dosage: 50 MG, QD
     Route: 048
     Dates: start: 20190419, end: 20190423

REACTIONS (7)
  - Ovarian hyperstimulation syndrome [Recovered/Resolved]
  - Nausea [Recovered/Resolved]
  - Pelvic pain [Recovered/Resolved]
  - Chest discomfort [Recovered/Resolved]
  - Pelvic fluid collection [Recovered/Resolved]
  - Pyrexia [Recovered/Resolved]
  - Diarrhoea [Recovered/Resolved]

NARRATIVE: CASE EVENT DATE: 201905
